FAERS Safety Report 6079085-5 (Version None)
Quarter: 2009Q1

REPORT INFORMATION
  Report Type: 
  Country: None (occurrence: None)
  Receive Date: 20090216
  Receipt Date: 20090213
  Transmission Date: 20090719
  Serious: Yes (Other)
  Sender: FDA-Public Use
  Company Number: A0768538A

PATIENT
  Sex: Female

DRUGS (1)
  1. NICODERM [Suspect]
     Route: 062
     Dates: start: 20080130

REACTIONS (1)
  - ASTHMA [None]
